FAERS Safety Report 6654372-8 (Version None)
Quarter: 2010Q1

REPORT INFORMATION
  Report Type: 
  Country: None (occurrence: None)
  Receive Date: 20100326
  Receipt Date: 20100315
  Transmission Date: 20100710
  Serious: Yes (Other)
  Sender: FDA-Public Use
  Company Number: ES-PFIZER INC-2010023214

PATIENT
  Age: 62 Year
  Sex: Male
  Weight: 133 kg

DRUGS (5)
  1. ZELDOX [Suspect]
     Indication: SCHIZOPHRENIA
     Dosage: 120 MG, 1X/DAY
     Dates: start: 20071023
  2. ZELDOX [Suspect]
     Dosage: 180 MG, 1X/DAY
     Route: 048
     Dates: end: 20100223
  3. FLURAZEPAM [Concomitant]
  4. DIAZEPAM [Concomitant]
     Dosage: 30 MG DAILY
  5. FLUVASTATIN [Concomitant]

REACTIONS (6)
  - BLOOD CHOLESTEROL INCREASED [None]
  - BLOOD PRESSURE INCREASED [None]
  - BLOOD TRIGLYCERIDES INCREASED [None]
  - ELECTROCARDIOGRAM QT PROLONGED [None]
  - GAMMA-GLUTAMYLTRANSFERASE INCREASED [None]
  - HYPOTENSION [None]
